FAERS Safety Report 16694471 (Version 1)
Quarter: 2019Q3

REPORT INFORMATION
  Report Type: Spontaneous
  Country: US (occurrence: US)
  Receive Date: 20190812
  Receipt Date: 20190812
  Transmission Date: 20191004
  Serious: Yes (Other)
  Sender: FDA-Public Use
  Company Number: US-NOVOPROD-677786

PATIENT
  Age: 76 Year
  Sex: Male

DRUGS (2)
  1. TRESIBA [Suspect]
     Active Substance: INSULIN DEGLUDEC
     Dosage: 70 UNITS (DOSE DECREASED)
     Route: 058
  2. TRESIBA [Suspect]
     Active Substance: INSULIN DEGLUDEC
     Indication: PRODUCT USED FOR UNKNOWN INDICATION
     Dosage: 98 UNITS
     Route: 058
     Dates: start: 2017

REACTIONS (5)
  - Weight decreased [Unknown]
  - Product quality issue [Recovering/Resolving]
  - Blood glucose decreased [Unknown]
  - Arthropathy [Unknown]
  - Blood glucose increased [Recovering/Resolving]
